FAERS Safety Report 18338272 (Version 1)
Quarter: 2020Q4

REPORT INFORMATION
  Report Type: Report from Study
  Country: MX (occurrence: MX)
  Receive Date: 20201002
  Receipt Date: 20201002
  Transmission Date: 20210113
  Serious: Yes (Death)
  Sender: FDA-Public Use
  Company Number: NVSC2020MX267298

PATIENT
  Sex: Female

DRUGS (1)
  1. ENTRESTO [Suspect]
     Active Substance: SACUBITRIL\VALSARTAN
     Indication: ARRHYTHMIA
     Dosage: 1 DF, QD (50 MG)
     Route: 048
     Dates: start: 201904

REACTIONS (3)
  - Cardiac failure [Fatal]
  - Product prescribing error [Unknown]
  - Product use in unapproved indication [Unknown]
